FAERS Safety Report 17257111 (Version 3)
Quarter: 2020Q3

REPORT INFORMATION
  Report Type: Report from Study
  Country: US (occurrence: US)
  Receive Date: 20200110
  Receipt Date: 20200129
  Transmission Date: 20201104
  Serious: Yes (Hospitalization)
  Sender: FDA-Public Use
  Company Number: US-PFIZER INC-2020004001

PATIENT
  Age: 61 Year
  Sex: Female
  Weight: 117.4 kg

DRUGS (2)
  1. TALAZOPARIB. [Suspect]
     Active Substance: TALAZOPARIB
     Indication: NEOPLASM
     Dosage: 1 MG, 1X/DAY
     Route: 048
     Dates: start: 20181115, end: 20200101
  2. AVELUMAB [Suspect]
     Active Substance: AVELUMAB
     Indication: NEOPLASM
     Dosage: 800 MG, CYCLIC (DAY 1 AND DAY 15 OF EACH 28 DAY CYCLE)
     Route: 042
     Dates: start: 20181115, end: 20191218

REACTIONS (1)
  - Liver injury [Recovered/Resolved]

NARRATIVE: CASE EVENT DATE: 20200102
